FAERS Safety Report 19697085 (Version 1)
Quarter: 2021Q3

REPORT INFORMATION
  Report Type: Report from Study
  Country: CA (occurrence: CA)
  Receive Date: 20210813
  Receipt Date: 20210813
  Transmission Date: 20211014
  Serious: Yes (Other)
  Sender: FDA-Public Use
  Company Number: CA-PFIZER INC-202101006500

PATIENT
  Age: 50 Year
  Sex: Male

DRUGS (4)
  1. CITALOPRAM HYDROBROMIDE. [Suspect]
     Active Substance: CITALOPRAM HYDROBROMIDE
     Indication: SECONDARY PROGRESSIVE MULTIPLE SCLEROSIS
     Dosage: 10 MG, 1 EVERY 1 DAYS
     Route: 048
  2. BACLOFEN. [Suspect]
     Active Substance: BACLOFEN
     Dosage: 10 MG, 3 EVERY 1 DAYS
     Route: 065
  3. REBIF [Suspect]
     Active Substance: INTERFERON BETA-1A
     Route: 065
  4. GABAPENTIN. [Suspect]
     Active Substance: GABAPENTIN
     Dosage: 300 MG, 3 EVERY 1 DAYS
     Route: 065

REACTIONS (14)
  - Cataract [Unknown]
  - Hypoaesthesia [Unknown]
  - Lymphopenia [Unknown]
  - Leukopenia [Unknown]
  - Asthenia [Unknown]
  - Micturition urgency [Unknown]
  - Lhermitte^s sign [Unknown]
  - Dysmetria [Unknown]
  - Neuralgia [Unknown]
  - Neutropenia [Unknown]
  - Muscle spasticity [Unknown]
  - Infarction [Unknown]
  - Gait disturbance [Unknown]
  - Product use in unapproved indication [Unknown]
